FAERS Safety Report 5677321-8 (Version None)
Quarter: 2008Q1

REPORT INFORMATION
  Report Type: 
  Country: None (occurrence: None)
  Receive Date: 20080320
  Receipt Date: 20080320
  Transmission Date: 20080703
  Serious: No
  Sender: FDA-Public Use
  Company Number: None

PATIENT
  Age: 66 Year
  Sex: Female
  Weight: 63.5036 kg

DRUGS (2)
  1. ACTONEL [Suspect]
     Dosage: ACTONEL - 1 PILL WEEKLY
     Dates: start: 20080218, end: 20080218
  2. CALCIUM TABLETS   500 MG   CALCIUM   ^   ^   ^ [Suspect]

REACTIONS (8)
  - ANOREXIA [None]
  - ASTHENIA [None]
  - CHEST DISCOMFORT [None]
  - DYSPEPSIA [None]
  - DYSPNOEA [None]
  - INSOMNIA [None]
  - MYALGIA [None]
  - STOMACH DISCOMFORT [None]
